FAERS Safety Report 9304340 (Version 2)
Quarter: 2013Q2

REPORT INFORMATION
  Report Type: Spontaneous
  Country: US (occurrence: US)
  Receive Date: 20130522
  Receipt Date: 20130530
  Transmission Date: 20140414
  Serious: No
  Sender: FDA-Public Use
  Company Number: US-009507513-1305USA013131

PATIENT
  Age: 71 Year
  Sex: Female
  Weight: 58.96 kg

DRUGS (5)
  1. MIRALAX [Suspect]
     Indication: CONSTIPATION
     Dosage: UNK, QPM
     Route: 048
     Dates: start: 201210
  2. MIRALAX [Suspect]
     Indication: MEDICAL OBSERVATION
  3. LOSARTIN [Concomitant]
     Indication: HYPERTENSION
  4. CRESTOR [Concomitant]
     Indication: BLOOD CHOLESTEROL
  5. BIOTIN [Concomitant]
     Indication: ALOPECIA

REACTIONS (3)
  - Drug effect decreased [Recovered/Resolved]
  - Incorrect drug administration duration [Unknown]
  - Product taste abnormal [Unknown]
